FAERS Safety Report 17661634 (Version 5)
Quarter: 2020Q3

REPORT INFORMATION
  Report Type: Other
  Country: US (occurrence: US)
  Receive Date: 20200413
  Receipt Date: 20200812
  Transmission Date: 20201102
  Serious: No
  Sender: FDA-Public Use
  Company Number: US-TRIS PHARMA, INC.-20US008915

PATIENT

DRUGS (4)
  1. HYDROCODONE + APAP [Suspect]
     Active Substance: ACETAMINOPHEN\HYDROCODONE BITARTRATE
     Dosage: 1 DOSAGE FORM, Q 8 HR AS NEEDED
     Route: 048
     Dates: start: 20200310
  2. MELOXICAM. [Concomitant]
     Active Substance: MELOXICAM
     Indication: ARTHRITIS
     Dosage: UNK
     Route: 065
  3. HYDROCODONE + APAP [Suspect]
     Active Substance: ACETAMINOPHEN\HYDROCODONE BITARTRATE
     Indication: BACK PAIN
     Dosage: 1 DOSAGE FORM
     Route: 048
     Dates: start: 20200508
  4. TIZANIDINE. [Concomitant]
     Active Substance: TIZANIDINE
     Indication: PRODUCT USED FOR UNKNOWN INDICATION
     Dosage: UNK, BEDTIME
     Route: 065

REACTIONS (19)
  - Abdominal discomfort [Recovered/Resolved]
  - Therapeutic response shortened [Unknown]
  - Sticky skin [Recovered/Resolved]
  - Vertigo [Unknown]
  - Product formulation issue [Unknown]
  - Cold sweat [Recovered/Resolved]
  - Blood pressure increased [Unknown]
  - Vision blurred [Unknown]
  - Therapeutic product effect variable [Unknown]
  - Migraine [Recovered/Resolved]
  - Vomiting [Unknown]
  - Drug ineffective [Unknown]
  - Manufacturing materials contamination [Unknown]
  - Presyncope [Recovered/Resolved]
  - Dizziness [Unknown]
  - Nausea [Unknown]
  - Tinnitus [Unknown]
  - Chest pain [Unknown]
  - Palpitations [Unknown]

NARRATIVE: CASE EVENT DATE: 20200310
